FAERS Safety Report 7593319-7 (Version None)
Quarter: 2011Q3

REPORT INFORMATION
  Report Type: 
  Country: None (occurrence: None)
  Receive Date: 20110706
  Receipt Date: 20090603
  Transmission Date: 20111222
  Serious: Yes (Death, Other)
  Sender: FDA-Public Use
  Company Number: US-BAYER-200923653NA

PATIENT
  Age: 71 Year
  Sex: Female
  Weight: 57.37 kg

DRUGS (23)
  1. TRASYLOL [Suspect]
     Indication: PRODUCT USED FOR UNKNOWN INDICATION
     Dosage: 1 ML, ONCE, INITIAL TEST DOSE
     Route: 042
     Dates: start: 20050912
  2. TRASYLOL [Suspect]
     Dosage: 100 CC
     Route: 042
     Dates: start: 20050912
  3. LASIX [Concomitant]
     Dosage: 20 MG, QD
     Route: 048
  4. TENEX [Concomitant]
     Dosage: 1 MG, QD
     Route: 048
  5. HEPARIN [Concomitant]
     Dosage: 18,000 UNITS
     Route: 042
     Dates: start: 20050912
  6. MAG SULPHATE [Concomitant]
     Dosage: 5000 MG
     Route: 042
     Dates: start: 20050912
  7. NIPRIDE [Concomitant]
  8. PRILOSEC [Concomitant]
     Dosage: 20 MG, QD
     Route: 048
  9. ANCEF [Concomitant]
     Dosage: 1 GRAM
     Route: 042
     Dates: start: 20050912
  10. AMIDATE [Concomitant]
     Dosage: 12 MG
     Route: 042
     Dates: start: 20050912
  11. LOTREL [Concomitant]
     Dosage: 5/10 MG DAILY
     Route: 048
  12. DOBUTAMINE HCL [Concomitant]
     Dosage: 250 CC AT 2 MCG/KG/MINUTE
     Route: 042
     Dates: start: 20050912
  13. RED BLOOD CELLS [Concomitant]
     Dosage: 2 U, ONCE
     Route: 042
     Dates: start: 20050912
  14. COUMADIN [Concomitant]
  15. ACETYLSALICYLIC ACID SRT [Concomitant]
  16. TRASYLOL [Suspect]
     Dosage: 25 CC/HOUR INFUSION
     Route: 042
     Dates: start: 20050912
  17. PLASMA [Concomitant]
     Dosage: 2 U, ONCE
     Route: 042
     Dates: start: 20050912
  18. VERSED [Concomitant]
     Dosage: 15 MG
     Route: 042
     Dates: start: 20050912
  19. SODIUM BICARBONATE [Concomitant]
     Dosage: 50 MEQ
     Route: 042
     Dates: start: 20050912
  20. AMIODARONE HCL [Concomitant]
     Dosage: UNK
     Route: 042
     Dates: start: 20051018
  21. ZETIA [Concomitant]
     Route: 048
  22. FENTANYL [Concomitant]
     Dosage: 1750 MCG
     Route: 042
     Dates: start: 20050912
  23. CORDARONE [Concomitant]

REACTIONS (15)
  - MYOCARDIAL INFARCTION [None]
  - RENAL IMPAIRMENT [None]
  - FEAR [None]
  - CEREBROVASCULAR ACCIDENT [None]
  - RENAL FAILURE [None]
  - EMOTIONAL DISTRESS [None]
  - PAIN [None]
  - MULTI-ORGAN FAILURE [None]
  - ANXIETY [None]
  - DEATH [None]
  - UNEVALUABLE EVENT [None]
  - STRESS [None]
  - INJURY [None]
  - RENAL INJURY [None]
  - ANHEDONIA [None]
